FAERS Safety Report 25728871 (Version 2)
Quarter: 2025Q3

REPORT INFORMATION
  Report Type: Spontaneous
  Country: EU (occurrence: EU)
  Receive Date: 20250826
  Receipt Date: 20250925
  Transmission Date: 20251021
  Serious: Yes (Disabling)
  Sender: NOVO NORDISK
  Company Number: None

PATIENT
  Age: 52 Year
  Sex: Female
  Weight: 82 kg

DRUGS (10)
  1. OMEPRAZOE [Concomitant]
  2. HUMULIN N [Concomitant]
     Active Substance: INSULIN HUMAN
  3. CITALOPRAM EBB [Concomitant]
  4. METOPROLOL 1A FARMA RETARD [Concomitant]
  5. OZEMPIC [Suspect]
     Active Substance: SEMAGLUTIDE
     Indication: Type 2 diabetes mellitus
     Dosage: 1 MG, QW(1 SPRAY PER WEEK)
     Dates: start: 20250327, end: 20250612
  6. SIMVASTATIN [Concomitant]
     Active Substance: SIMVASTATIN
  7. FERROUS SULFATE [Concomitant]
     Active Substance: FERROUS SULFATE
  8. HUMALOG [Concomitant]
     Active Substance: INSULIN LISPRO
  9. METFORMIN ACCORD [Concomitant]
  10. SYMBICORT [Concomitant]
     Active Substance: BUDESONIDE\FORMOTEROL FUMARATE DIHYDRATE

REACTIONS (2)
  - Sensory disturbance [Unknown]
  - Peroneal nerve palsy [Recovering/Resolving]

NARRATIVE: CASE EVENT DATE: 20250101
